FAERS Safety Report 6207464-1 (Version None)
Quarter: 2009Q2

REPORT INFORMATION
  Report Type: 
  Country: None (occurrence: None)
  Receive Date: 20090528
  Receipt Date: 20090518
  Transmission Date: 20091009
  Serious: Yes (Death, Hospitalization)
  Sender: FDA-Public Use
  Company Number: BR-PFIZER INC-2008099610

PATIENT
  Age: 54 Year

DRUGS (16)
  1. BLINDED *PLACEBO [Suspect]
     Indication: COLORECTAL CANCER METASTATIC
     Dosage: 37.5 MG, 1X/DAY
     Route: 048
     Dates: start: 20080918, end: 20081117
  2. BLINDED SUNITINIB MALATE [Suspect]
     Indication: COLORECTAL CANCER METASTATIC
     Dosage: 37.5 MG, 1X/DAY
     Route: 048
     Dates: start: 20080918, end: 20081117
  3. IRINOTECAN HCL [Suspect]
     Indication: COLORECTAL CANCER METASTATIC
     Dosage: SINGLE EVERY TWO WEEKS
     Route: 042
     Dates: start: 20080918
  4. FLUOROURACIL [Suspect]
     Indication: COLORECTAL CANCER METASTATIC
     Dosage: 636 MG, EVERY TWO WEEKS
     Route: 042
     Dates: start: 20080918
  5. FLUOROURACIL [Suspect]
     Dosage: 3815 MG, INFUSION
     Route: 042
     Dates: start: 20080918
  6. FOLINIC ACID [Suspect]
     Indication: COLORECTAL CANCER METASTATIC
     Dosage: 318 MG, SINGLE EVERY TWO WEEKS
     Route: 042
     Dates: start: 20080918
  7. CAPTOPRIL [Concomitant]
     Route: 048
     Dates: start: 20050101
  8. ACETAMINOPHEN [Concomitant]
     Dosage: UNK
     Route: 048
     Dates: start: 20081001, end: 20081123
  9. DEXAMETHASONE [Concomitant]
     Dosage: UNK
     Route: 042
     Dates: start: 20080918, end: 20081112
  10. BUSCOPAN [Concomitant]
     Dosage: UNK
     Route: 042
     Dates: start: 20080918, end: 20081123
  11. ATROPINE [Concomitant]
     Dosage: UNK
     Route: 042
     Dates: start: 20080918, end: 20081112
  12. CODEINE [Concomitant]
     Dosage: UNK
     Route: 048
     Dates: start: 20080101, end: 20081123
  13. DIAZEPAM [Concomitant]
     Dosage: UNK
     Route: 048
     Dates: start: 20080720, end: 20081123
  14. KYTRIL [Concomitant]
     Dosage: UNK
     Route: 042
     Dates: start: 20080918, end: 20081112
  15. FLUOXETINE [Concomitant]
     Dosage: UNK
     Route: 048
     Dates: start: 20080720
  16. HYDROCHLOROTHIAZIDE [Concomitant]
     Dosage: UNK
     Route: 048
     Dates: start: 20050101

REACTIONS (2)
  - DIARRHOEA [None]
  - SEPSIS [None]
